FAERS Safety Report 8277721-6 (Version None)
Quarter: 2012Q1

REPORT INFORMATION
  Report Type: 
  Country: None (occurrence: None)
  Receive Date: 20120312
  Receipt Date: 20120127
  Transmission Date: 20120608
  Serious: No
  Sender: FDA-Public Use
  Company Number: 2012SP005522

PATIENT
  Age: 62 Year
  Sex: Female

DRUGS (2)
  1. SAPHRIS [Suspect]
     Indication: BIPOLAR I DISORDER
     Dosage: QD;SL, 20 MG;QPM;SL
     Route: 060
     Dates: start: 20110101
  2. GEODON [Concomitant]

REACTIONS (5)
  - FEELING ABNORMAL [None]
  - HUNGER [None]
  - THERAPEUTIC PRODUCT INEFFECTIVE [None]
  - SOMNOLENCE [None]
  - INAPPROPRIATE SCHEDULE OF DRUG ADMINISTRATION [None]
